FAERS Safety Report 10740548 (Version 1)
Quarter: 2015Q1

REPORT INFORMATION
  Report Type: Spontaneous
  Country: CA (occurrence: CA)
  Receive Date: 20150127
  Receipt Date: 20150127
  Transmission Date: 20150721
  Serious: Yes (Hospitalization, Other)
  Sender: FDA-Public Use
  Company Number: CA-JNJFOC-20150112776

PATIENT
  Sex: Female

DRUGS (3)
  1. XARELTO [Suspect]
     Active Substance: RIVAROXABAN
     Indication: HEART RATE IRREGULAR
     Route: 048
  2. ASPIRIN. [Interacting]
     Active Substance: ASPIRIN
     Indication: ARRHYTHMIA
     Route: 065
  3. XARELTO [Suspect]
     Active Substance: RIVAROXABAN
     Indication: PRODUCT USED FOR UNKNOWN INDICATION
     Route: 048

REACTIONS (8)
  - Haemoptysis [Unknown]
  - Nasopharyngitis [Unknown]
  - Drug interaction [Unknown]
  - Off label use [Unknown]
  - Pneumonia [Unknown]
  - Spinal cord haemorrhage [Unknown]
  - Paraplegia [Unknown]
  - Heart rate abnormal [Unknown]

NARRATIVE: CASE EVENT DATE: 201403
